FAERS Safety Report 4525183-4 (Version None)
Quarter: 2004Q4

REPORT INFORMATION
  Report Type: 
  Country: None (occurrence: None)
  Receive Date: 20041116
  Receipt Date: 20040722
  Transmission Date: 20050328
  Serious: No
  Sender: FDA-Public Use
  Company Number: S04-USA-04913-01

PATIENT
  Age: 80 Year
  Sex: Female

DRUGS (17)
  1. NAMENDA [Suspect]
     Indication: DEMENTIA ALZHEIMER'S TYPE
     Dosage: 10 MG BID PO
     Route: 048
     Dates: start: 20040721
  2. NAMENDA [Suspect]
     Indication: DEMENTIA ALZHEIMER'S TYPE
     Dosage: 5 MG QD PO
     Route: 048
     Dates: start: 20040630, end: 20040706
  3. ARICEPT [Concomitant]
  4. LASIX [Concomitant]
  5. METOPROLOL [Concomitant]
  6. NAMENDA [Suspect]
     Indication: DEMENTIA ALZHEIMER'S TYPE
     Dosage: 10 MG QD PO
     Route: 048
     Dates: start: 20040707, end: 20040713
  7. NAMENDA [Suspect]
     Indication: DEMENTIA ALZHEIMER'S TYPE
     Dosage: 15 MG QD PO
     Route: 048
     Dates: start: 20040714, end: 20040720
  8. BENEFIBER [Concomitant]
  9. POTASSIUM [Concomitant]
  10. COZAAR [Concomitant]
  11. LIPITOR [Concomitant]
  12. ALEVE [Concomitant]
  13. ATROVEN NASAL SPRAY [Concomitant]
  14. MIACALCIN [Concomitant]
  15. FOSAMAX [Concomitant]
  16. CALCIUM [Concomitant]
  17. MULTI-VITAMIN [Concomitant]

REACTIONS (2)
  - DIARRHOEA [None]
  - DISORIENTATION [None]
